FAERS Safety Report 7272718-7 (Version None)
Quarter: 2011Q1

REPORT INFORMATION
  Report Type: 
  Country: None (occurrence: None)
  Receive Date: 20110203
  Receipt Date: 20110128
  Transmission Date: 20110831
  Serious: Yes (Other)
  Sender: FDA-Public Use
  Company Number: US-PFIZER INC-2010165223

PATIENT
  Sex: Female
  Weight: 136.05 kg

DRUGS (8)
  1. TYSABRI [Concomitant]
     Indication: LIMB DISCOMFORT
     Dosage: UNK
     Route: 048
  2. DETROL LA [Concomitant]
     Indication: BLADDER DISORDER
     Dosage: 4 MG, 1X/DAY
     Route: 048
  3. NAPROXEN [Concomitant]
     Indication: ARTHRALGIA
     Dosage: 500 MG, 1X/DAY
     Route: 048
  4. CHANTIX [Suspect]
     Indication: SMOKING CESSATION THERAPY
     Dosage: 0.5 MG, UNK
     Route: 048
  5. LASIX [Concomitant]
     Indication: JOINT SWELLING
     Dosage: 40 MG, UNK
     Route: 048
  6. NORETHINDRONE [Concomitant]
     Dosage: 5 MG, 1X/DAY
     Route: 048
  7. VITAMIN D [Concomitant]
     Indication: PROPHYLAXIS
     Dosage: UNK
     Route: 048
  8. BACLOFEN [Concomitant]
     Indication: OSTEOPOROSIS
     Dosage: 10 MG, 1X/DAY
     Route: 048

REACTIONS (3)
  - SUICIDAL IDEATION [None]
  - DEPRESSION [None]
  - ANXIETY [None]
